FAERS Safety Report 5486483-7 (Version None)
Quarter: 2007Q4

REPORT INFORMATION
  Report Type: 
  Country: None (occurrence: None)
  Receive Date: 20071016
  Receipt Date: 20071005
  Transmission Date: 20080405
  Serious: Yes (Hospitalization)
  Sender: FDA-Public Use
  Company Number: B0490903A

PATIENT
  Age: 75 Year
  Sex: Male

DRUGS (4)
  1. CEFUROXIME [Suspect]
     Dosage: 750MG THREE TIMES PER DAY
     Route: 048
     Dates: start: 20070802, end: 20070828
  2. VANCOMYCIN [Suspect]
     Dosage: 1G TWICE PER DAY
     Route: 042
     Dates: start: 20070802, end: 20070828
  3. PROFENID [Suspect]
     Dosage: 50MG TWICE PER DAY
     Route: 048
     Dates: start: 20070802, end: 20070901
  4. LOVENOX [Concomitant]
     Dosage: 4000UNIT PER DAY
     Route: 058
     Dates: start: 20070802

REACTIONS (3)
  - AGRANULOCYTOSIS [None]
  - PYREXIA [None]
  - RESPIRATORY DISORDER [None]
